FAERS Safety Report 14375474 (Version 1)
Quarter: 2018Q1

REPORT INFORMATION
  Report Type: Spontaneous
  Country: BR (occurrence: BR)
  Receive Date: 20180111
  Receipt Date: 20180111
  Transmission Date: 20180509
  Serious: Yes (Death)
  Sender: FDA-Public Use
  Company Number: BR-IGSA-SR10005713

PATIENT
  Age: 5 Year
  Sex: Male
  Weight: 29 kg

DRUGS (2)
  1. FLEBOGAMMA DIF [Suspect]
     Active Substance: HUMAN IMMUNOGLOBULIN G
     Indication: HISTIOCYTOSIS HAEMATOPHAGIC
     Dosage: 25 G, QD
     Route: 042
     Dates: start: 20170802, end: 20170802
  2. FUROSEMIDE. [Concomitant]
     Active Substance: FUROSEMIDE
     Indication: HYPERTENSION
     Dosage: UNK
     Dates: start: 20170802, end: 20170802

REACTIONS (5)
  - Hypertension [Unknown]
  - Shock [Unknown]
  - Cardiac arrest [Fatal]
  - Seizure [Unknown]
  - Oxygen saturation decreased [Unknown]

NARRATIVE: CASE EVENT DATE: 20170802
